FAERS Safety Report 4372610-1 (Version None)
Quarter: 2004Q2

REPORT INFORMATION
  Report Type: 
  Country: None (occurrence: None)
  Receive Date: 20040526
  Receipt Date: 20040514
  Transmission Date: 20050107
  Serious: Yes (Life-Threatening, Hospitalization)
  Sender: FDA-Public Use
  Company Number: 2003SP000006

PATIENT
  Age: 85 Year
  Sex: Female
  Weight: 52.6173 kg

DRUGS (10)
  1. XOPENEX [Suspect]
     Indication: ASTHMA
     Dosage: 1.25 MG; AS NEEDED; INHALATION
     Route: 055
     Dates: start: 20030918, end: 20030918
  2. XOPENEX [Suspect]
     Indication: CHRONIC OBSTRUCTIVE AIRWAYS DISEASE
     Dosage: 1.25 MG; AS NEEDED; INHALATION
     Route: 055
     Dates: start: 20030918, end: 20030918
  3. NORMAL SALINE SOLUTION BOLUS [Concomitant]
  4. POTASSIUM [Concomitant]
  5. METHYLPREDNISOLONE [Concomitant]
  6. CEFTRIAXONE [Concomitant]
  7. GUAIFENESIN [Concomitant]
  8. SYNTHROID [Concomitant]
  9. PEPCID [Concomitant]
  10. HEPARIN [Concomitant]

REACTIONS (7)
  - BLOOD PH DECREASED [None]
  - CARDIAC FAILURE [None]
  - CARDIOMEGALY [None]
  - CHEST X-RAY ABNORMAL [None]
  - HAEMATOCRIT DECREASED [None]
  - HAEMOGLOBIN DECREASED [None]
  - PNEUMONIA [None]
